FAERS Safety Report 9492307 (Version 1)
Quarter: 2013Q3

REPORT INFORMATION
  Report Type: Spontaneous
  Country: ES (occurrence: ES)
  Receive Date: 20130830
  Receipt Date: 20130830
  Transmission Date: 20140515
  Serious: Yes (Hospitalization)
  Sender: FDA-Public Use
  Company Number: PHHY2013ES092762

PATIENT
  Age: 78 Year
  Sex: Female

DRUGS (2)
  1. LEVOFLOXACIN [Suspect]
     Indication: HIP ARTHROPLASTY
  2. CLINDAMYCIN [Suspect]
     Indication: HIP ARTHROPLASTY

REACTIONS (10)
  - Acute generalised exanthematous pustulosis [Unknown]
  - Rash [Recovered/Resolved]
  - Skin plaque [Recovered/Resolved]
  - Rash pustular [Recovered/Resolved]
  - Rash papular [Recovered/Resolved]
  - Generalised erythema [Recovered/Resolved]
  - Face oedema [Unknown]
  - Skin exfoliation [Recovered/Resolved]
  - Leukocytosis [Unknown]
  - Scab [Unknown]
